FAERS Safety Report 7525975-3 (Version None)
Quarter: 2011Q2

REPORT INFORMATION
  Report Type: 
  Country: None (occurrence: None)
  Receive Date: 20110606
  Receipt Date: 20110524
  Transmission Date: 20111010
  Serious: Yes (Hospitalization)
  Sender: FDA-Public Use
  Company Number: US-JNJFOC-20110411732

PATIENT
  Sex: Female
  Weight: 58.97 kg

DRUGS (3)
  1. REMICADE [Suspect]
     Indication: CROHN'S DISEASE
     Route: 042
     Dates: start: 20110304, end: 20110304
  2. REMICADE [Suspect]
     Route: 042
     Dates: start: 20030101, end: 20030101
  3. PENTASA [Concomitant]

REACTIONS (15)
  - PRURITUS [None]
  - WEIGHT INCREASED [None]
  - VULVOVAGINAL PRURITUS [None]
  - MENINGITIS VIRAL [None]
  - SKIN MASS [None]
  - URTICARIA [None]
  - ABASIA [None]
  - MEMORY IMPAIRMENT [None]
  - BRONCHOSPASM [None]
  - INFUSION RELATED REACTION [None]
  - FEELING HOT [None]
  - FATIGUE [None]
  - NIGHT SWEATS [None]
  - VITAMIN D DEFICIENCY [None]
  - BLOOD IRON DECREASED [None]
